FAERS Safety Report 7391593-3 (Version None)
Quarter: 2011Q2

REPORT INFORMATION
  Report Type: 
  Country: None (occurrence: None)
  Receive Date: 20110404
  Receipt Date: 20110330
  Transmission Date: 20111010
  Serious: Yes (Death)
  Sender: FDA-Public Use
  Company Number: PHHY2011MX26353

PATIENT
  Age: 83 Year
  Sex: Female

DRUGS (1)
  1. CO-DIOVAN [Suspect]
     Indication: HYPERTENSION
     Dosage: 160/25 MG, 2 TABLETS DAILY
     Route: 048
     Dates: start: 20080101

REACTIONS (1)
  - DEATH [None]
